FAERS Safety Report 8661848 (Version 2)
Quarter: 2012Q4

REPORT INFORMATION
  Report Type: 
  Country: DE (occurrence: DE)
  Receive Date: 20120712
  Receipt Date: 20120829
  Transmission Date: 20130627
  Serious: Yes (Other)
  Sender: FDA-Public Use
  Company Number: DE-JNJFOC-20120704627

PATIENT
  Age: 22 None
  Sex: Female
  Weight: 90 kg

DRUGS (4)
  1. XARELTO [Suspect]
     Indication: VENOUS THROMBOSIS LIMB
     Route: 048
     Dates: start: 201206
  2. XARELTO [Suspect]
     Indication: VENOUS THROMBOSIS LIMB
     Route: 048
     Dates: start: 201205, end: 201206
  3. MIRENA [Suspect]
     Indication: CONTRACEPTION
     Route: 015
     Dates: start: 20110401, end: 20120607
  4. HEPARIN [Concomitant]
     Indication: PROPHYLAXIS
     Dates: start: 201110, end: 201112

REACTIONS (4)
  - Menorrhagia [Unknown]
  - Venous thrombosis limb [Not Recovered/Not Resolved]
  - Abdominal pain lower [Unknown]
  - Device expulsion [Unknown]
